FAERS Safety Report 23505009 (Version 1)
Quarter: 2024Q1

REPORT INFORMATION
  Report Type: Spontaneous
  Country: US (occurrence: US)
  Receive Date: 20240209
  Receipt Date: 20240209
  Transmission Date: 20240410
  Serious: No
  Sender: FDA-Public Use
  Company Number: None

PATIENT
  Age: 61 Year
  Sex: Male
  Weight: 55.8 kg

DRUGS (10)
  1. GABAPENTIN [Suspect]
     Active Substance: GABAPENTIN
     Indication: Neuropathy peripheral
     Dosage: 1200 MILLIGRAM, QD (EVERY 1 DAY)
     Route: 065
  2. GABAPENTIN [Suspect]
     Active Substance: GABAPENTIN
     Dosage: 400 MILLIGRAM, BID
     Route: 048
  3. GABAPENTIN [Suspect]
     Active Substance: GABAPENTIN
     Dosage: 600 MILLIGRAM, QD (SELF-TAPERED)
     Route: 065
  4. GABAPENTIN [Suspect]
     Active Substance: GABAPENTIN
     Dosage: 100 MILLIGRAM, QD (EVERY ONE DAY)
     Route: 048
  5. GABAPENTIN [Suspect]
     Active Substance: GABAPENTIN
     Dosage: 200 MILLIGRAM, QD
     Route: 048
  6. GABAPENTIN [Suspect]
     Active Substance: GABAPENTIN
     Dosage: 300 MILLIGRAM, HS (NIGHTLY BY HIS ONCOLOGIST )
     Route: 048
  7. GABAPENTIN [Suspect]
     Active Substance: GABAPENTIN
     Dosage: 600 MILLIGRAM, BID
     Route: 048
  8. GABAPENTIN [Suspect]
     Active Substance: GABAPENTIN
     Dosage: 300 MILLIGRAM, BID
     Route: 048
  9. GABAPENTIN [Suspect]
     Active Substance: GABAPENTIN
     Dosage: UNK
     Route: 065
  10. GABAPENTIN [Suspect]
     Active Substance: GABAPENTIN
     Dosage: UNK (300 MG AM/600 MG PM)
     Route: 065

REACTIONS (1)
  - Urinary incontinence [Recovered/Resolved]
